FAERS Safety Report 10172337 (Version 1)
Quarter: 2014Q2

REPORT INFORMATION
  Report Type: Spontaneous
  Country: US (occurrence: US)
  Receive Date: 20140515
  Receipt Date: 20140515
  Transmission Date: 20141212
  Serious: Yes (Hospitalization, Other)
  Sender: FDA-Public Use
  Company Number: US-JNJFOC-20140500722

PATIENT
  Age: 49 Year
  Sex: Female

DRUGS (1)
  1. SUDAFED [Suspect]
     Indication: NASAL CONGESTION
     Route: 065

REACTIONS (1)
  - Colitis ischaemic [Unknown]
